FAERS Safety Report 9170278 (Version 1)
Quarter: 2013Q1

REPORT INFORMATION
  Report Type: Spontaneous
  Country: GB (occurrence: GB)
  Receive Date: 20130319
  Receipt Date: 20130319
  Transmission Date: 20140127
  Serious: Yes (Disabling)
  Sender: FDA-Public Use
  Company Number: GB-ACCORD-016871

PATIENT
  Age: 83 Year
  Sex: Male
  Weight: 85 kg

DRUGS (6)
  1. BICALUTAMIDE [Suspect]
     Indication: PROSTATE CANCER
     Route: 048
     Dates: start: 20130123
  2. ZOLADEX [Suspect]
     Indication: PROSTATE CANCER
     Route: 058
     Dates: start: 20121224, end: 20121224
  3. VERAPAMIL [Concomitant]
     Indication: ATRIAL FIBRILLATION
     Route: 048
     Dates: start: 20110707
  4. PRAVASTATIN [Concomitant]
     Indication: ATRIAL FIBRILLATION
     Dosage: AT NIGHT
     Route: 048
     Dates: start: 20110314
  5. TAMOXIFEN [Concomitant]
     Indication: PROSTATE CANCER
     Route: 048
     Dates: start: 20130123
  6. WARFARIN [Concomitant]
     Dosage: VARIABLE
     Route: 048
     Dates: start: 20110107

REACTIONS (2)
  - Orthostatic hypotension [Not Recovered/Not Resolved]
  - Loss of consciousness [Not Recovered/Not Resolved]
